FAERS Safety Report 6811125-5 (Version None)
Quarter: 2010Q2

REPORT INFORMATION
  Report Type: 
  Country: None (occurrence: None)
  Receive Date: 20100630
  Receipt Date: 20090602
  Transmission Date: 20101027
  Serious: No
  Sender: FDA-Public Use
  Company Number: US-PFIZER INC-2009155083

PATIENT
  Sex: Female

DRUGS (1)
  1. NICOTROL [Suspect]
     Dates: start: 20081216

REACTIONS (1)
  - THROAT IRRITATION [None]
